FAERS Safety Report 8874691 (Version 1)
Quarter: 2012Q4

REPORT INFORMATION
  Report Type: 
  Country: US (occurrence: US)
  Receive Date: 20121031
  Receipt Date: 20121031
  Transmission Date: 20130627
  Serious: Yes (Hospitalization)
  Sender: FDA-Public Use
  Company Number: US-US-EMD SERONO, INC.-7140956

PATIENT
  Sex: Female

DRUGS (3)
  1. REBIF [Suspect]
     Indication: RELAPSING-REMITTING MULTIPLE SCLEROSIS
     Route: 058
     Dates: start: 201111
  2. AMITRIPTYLINE [Suspect]
     Indication: DEPRESSION
     Dates: end: 20120618
  3. AMITRIPTYLINE [Suspect]
     Indication: PAIN

REACTIONS (3)
  - Urinary retention [Recovering/Resolving]
  - Multiple sclerosis relapse [Unknown]
  - Injection site bruising [Recovered/Resolved]
